FAERS Safety Report 6822211-8 (Version None)
Quarter: 2010Q3

REPORT INFORMATION
  Report Type: 
  Country: None (occurrence: None)
  Receive Date: 20100707
  Receipt Date: 20100707
  Transmission Date: 20110219
  Serious: Yes (Other)
  Sender: FDA-Public Use
  Company Number: None

PATIENT
  Age: 53 Year
  Sex: Female
  Weight: 116.1208 kg

DRUGS (2)
  1. FUROSEMIDE [Suspect]
     Indication: OEDEMA PERIPHERAL
     Dosage: 40 MG 1 @ DAY PO
     Route: 048
     Dates: start: 20100625, end: 20100705
  2. FUROSEMIDE [Suspect]
     Indication: PERICARDIAL EFFUSION
     Dosage: 40 MG 1 @ DAY PO
     Route: 048
     Dates: start: 20100625, end: 20100705

REACTIONS (1)
  - BLOOD GLUCOSE INCREASED [None]
